FAERS Safety Report 7928946-8 (Version None)
Quarter: 2011Q4

REPORT INFORMATION
  Report Type: 
  Country: None (occurrence: None)
  Receive Date: 20111118
  Receipt Date: 20111115
  Transmission Date: 20120403
  Serious: Yes (Hospitalization, Disabling, Other)
  Sender: FDA-Public Use
  Company Number: US-MERCK-1107USA02805

PATIENT
  Age: 62 Year
  Sex: Female

DRUGS (3)
  1. FOSAMAX [Suspect]
     Route: 048
  2. FOSAMAX PLUS D [Suspect]
     Indication: OSTEOPOROSIS
     Route: 048
     Dates: start: 20060101, end: 20100206
  3. FOSAMAX PLUS D [Suspect]
     Indication: ARTHRITIS
     Route: 048
     Dates: start: 20060101, end: 20100206

REACTIONS (28)
  - CARDIAC DISORDER [None]
  - HYPOTHYROIDISM [None]
  - OSTEOARTHRITIS [None]
  - HYPERLIPIDAEMIA [None]
  - INTERVERTEBRAL DISC DEGENERATION [None]
  - DYSPNOEA EXERTIONAL [None]
  - OSTEONECROSIS OF JAW [None]
  - HYPERCHOLESTEROLAEMIA [None]
  - CORONARY ARTERY DISEASE [None]
  - CAROTID BRUIT [None]
  - BUNDLE BRANCH BLOCK LEFT [None]
  - MYOCARDIAL INFARCTION [None]
  - HYPERKERATOSIS [None]
  - JAW CYST [None]
  - INCREASED TENDENCY TO BRUISE [None]
  - GLOSSITIS [None]
  - NASAL SEPTUM DEVIATION [None]
  - TRICUSPID VALVE DISEASE [None]
  - GASTRIC ULCER [None]
  - OSTEOMYELITIS [None]
  - NASOPHARYNGITIS [None]
  - SACROILIITIS [None]
  - GASTROOESOPHAGEAL REFLUX DISEASE [None]
  - DENTAL CARIES [None]
  - AORTIC ARTERIOSCLEROSIS [None]
  - CELLULITIS [None]
  - OEDEMA PERIPHERAL [None]
  - MOUTH ULCERATION [None]
